FAERS Safety Report 23973917 (Version 1)
Quarter: 2024Q2

REPORT INFORMATION
  Report Type: Report from Study
  Country: US (occurrence: US)
  Receive Date: 20240613
  Receipt Date: 20240613
  Transmission Date: 20240715
  Serious: No
  Sender: FDA-Public Use
  Company Number: US-BIOGEN-2024BI01268606

PATIENT
  Sex: Female

DRUGS (2)
  1. ZURZUVAE [Suspect]
     Active Substance: ZURANOLONE
     Indication: Perinatal depression
     Route: 050
     Dates: start: 20240529
  2. ZURZUVAE [Suspect]
     Active Substance: ZURANOLONE
     Route: 050
     Dates: start: 202406

REACTIONS (3)
  - Disorientation [Recovered/Resolved]
  - Confusional state [Recovered/Resolved]
  - Fatigue [Recovered/Resolved]

NARRATIVE: CASE EVENT DATE: 20240101
